FAERS Safety Report 20709765 (Version 2)
Quarter: 2024Q1

REPORT INFORMATION
  Report Type: Spontaneous
  Country: GB (occurrence: GB)
  Receive Date: 20220414
  Receipt Date: 20240122
  Transmission Date: 20240410
  Serious: Yes (Disabling)
  Sender: FDA-Public Use
  Company Number: None

PATIENT
  Age: 79 Year
  Sex: Male
  Weight: 76 kg

DRUGS (9)
  1. DONEPEZIL [Suspect]
     Active Substance: DONEPEZIL
     Indication: Ill-defined disorder
     Dosage: UNKNOWN
     Route: 065
     Dates: start: 20220404
  2. ADCAL [Concomitant]
     Indication: Ill-defined disorder
     Dosage: TAKE 1 IN THE MORNING AND  1 IN THE EVENING
     Route: 065
     Dates: start: 20210513, end: 20220131
  3. BROMFENAC [Concomitant]
     Active Substance: BROMFENAC SODIUM
     Indication: Ill-defined disorder
     Dosage: 1 DROP FOUR TIMES A DAY INTO THE LEFT EYE
     Route: 065
     Dates: start: 20210301
  4. DEXAMETHASONE [Concomitant]
     Active Substance: DEXAMETHASONE
     Indication: Ill-defined disorder
     Dosage: ONE DROP EVERY 4 HRS INTO LEFT EYE
     Route: 065
     Dates: start: 20210301
  5. DONEPEZIL HYDROCHLORIDE [Concomitant]
     Active Substance: DONEPEZIL HYDROCHLORIDE
     Indication: Ill-defined disorder
     Dosage: TAKE ONE IN THE MORNING
     Route: 065
     Dates: start: 20211201, end: 20220131
  6. FELODIPINE [Concomitant]
     Active Substance: FELODIPINE
     Indication: Ill-defined disorder
     Dosage: ONE TO BE TAKEN IN THE MORNING
     Route: 065
     Dates: start: 20210301
  7. OMEPRAZOLE [Concomitant]
     Active Substance: OMEPRAZOLE
     Indication: Ill-defined disorder
     Dosage: TAKE 1 IN THE MORNING AND 1 IN THE EVENING
     Route: 065
     Dates: start: 20210301
  8. ACETAMINOPHEN [Concomitant]
     Active Substance: ACETAMINOPHEN
     Indication: Ill-defined disorder
     Dosage: 2 UPTO TDS AS NEEDED
     Route: 065
     Dates: start: 20220131, end: 20220204
  9. URSODIOL [Concomitant]
     Active Substance: URSODIOL
     Indication: Ill-defined disorder
     Dosage: TAKE 1 IN THE MORNING, 1 AT MIDDAY AND ONE...
     Route: 065
     Dates: start: 20210301, end: 20220321

REACTIONS (1)
  - Arthralgia [Recovered/Resolved]

NARRATIVE: CASE EVENT DATE: 20220404
